FAERS Safety Report 7342857-0 (Version None)
Quarter: 2011Q1

REPORT INFORMATION
  Report Type: 
  Country: None (occurrence: None)
  Receive Date: 20110310
  Receipt Date: 20110225
  Transmission Date: 20110831
  Serious: Yes (Life-Threatening, Hospitalization)
  Sender: FDA-Public Use
  Company Number: JP-BAYER-2011-004661

PATIENT
  Sex: Female
  Weight: 47 kg

DRUGS (7)
  1. PROHEPARUM [Concomitant]
     Indication: HEPATIC FUNCTION ABNORMAL
     Dosage: DAILY DOSE 3 DF
     Route: 048
     Dates: start: 20100902
  2. LAC-B [Concomitant]
     Indication: DIARRHOEA
     Dosage: DAILY DOSE 3 G
     Route: 048
     Dates: start: 20101007
  3. PROMAC [Concomitant]
     Indication: GASTRITIS
     Dosage: DAILY DOSE 75 MG
     Route: 048
     Dates: start: 20101014, end: 20110113
  4. SUTENT [Concomitant]
     Indication: RENAL CANCER
     Dosage: DAILY DOSE 37.5 MG
     Route: 048
     Dates: start: 20100713, end: 20101209
  5. ZOPICLONE [Concomitant]
     Indication: INSOMNIA
     Dosage: DAILY DOSE 7.5 MG
     Route: 048
     Dates: start: 20100705
  6. NEXAVAR [Suspect]
     Indication: RENAL CELL CARCINOMA
     Dosage: 400 MG, BID
     Route: 048
     Dates: start: 20101216, end: 20101226
  7. FUROSEMIDE [Concomitant]
     Indication: OEDEMA
     Dosage: DAILY DOSE 20 MG
     Route: 048
     Dates: start: 20101014

REACTIONS (1)
  - STEVENS-JOHNSON SYNDROME [None]
